FAERS Safety Report 11428769 (Version 1)
Quarter: 2015Q3

REPORT INFORMATION
  Report Type: Report from Study
  Country: JP (occurrence: JP)
  Receive Date: 20150828
  Receipt Date: 20150828
  Transmission Date: 20151125
  Serious: Yes (Other)
  Sender: FDA-Public Use
  Company Number: JP-SHIRE-JP201510545AA

PATIENT
  Age: 71 Year
  Sex: Male

DRUGS (7)
  1. 422 (ANAGRELIDE) [Suspect]
     Active Substance: ANAGRELIDE
     Dosage: 2.5 MG/DAY, UNKNOWN
     Route: 048
     Dates: start: 20150416, end: 20150527
  2. 422 (ANAGRELIDE) [Suspect]
     Active Substance: ANAGRELIDE
     Dosage: 1 MG/DAY, UNKNOWN
     Route: 048
     Dates: start: 20150122, end: 20150128
  3. 422 (ANAGRELIDE) [Suspect]
     Active Substance: ANAGRELIDE
     Dosage: 2 MG/DAY, UNKNOWN
     Route: 048
     Dates: start: 20150528
  4. 422 (ANAGRELIDE) [Suspect]
     Active Substance: ANAGRELIDE
     Indication: ESSENTIAL THROMBOCYTHAEMIA
     Dosage: 1 MG/DAY, UNKNOWN
     Route: 048
     Dates: start: 20141204, end: 20141210
  5. 422 (ANAGRELIDE) [Suspect]
     Active Substance: ANAGRELIDE
     Dosage: 2 MG/DAY, UNKNOWN
     Route: 048
     Dates: start: 20150305, end: 20150415
  6. 422 (ANAGRELIDE) [Suspect]
     Active Substance: ANAGRELIDE
     Dosage: 0.5 MG/DAY UNKNOWN
     Route: 048
     Dates: start: 20141211, end: 20150121
  7. 422 (ANAGRELIDE) [Suspect]
     Active Substance: ANAGRELIDE
     Dosage: 1.5 MG/DAY, UNKNOWN
     Route: 048
     Dates: start: 20150129, end: 20150304

REACTIONS (5)
  - Hyperuricaemia [Recovered/Resolved]
  - Diarrhoea [Not Recovered/Not Resolved]
  - Ascites [Recovering/Resolving]
  - Hypertrophic cardiomyopathy [Not Recovered/Not Resolved]
  - Hepatic function abnormal [Recovered/Resolved]

NARRATIVE: CASE EVENT DATE: 20150108
